FAERS Safety Report 7379035-5 (Version None)
Quarter: 2011Q1

REPORT INFORMATION
  Report Type: 
  Country: None (occurrence: None)
  Receive Date: 20110328
  Receipt Date: 20110318
  Transmission Date: 20110831
  Serious: Yes (Other)
  Sender: FDA-Public Use
  Company Number: IE-MEDIMMUNE-MEDI-0012967

PATIENT
  Sex: Male

DRUGS (4)
  1. SYNAGIS [Suspect]
     Route: 030
     Dates: start: 20110201, end: 20110201
  2. KAPSOVIT [Concomitant]
  3. FERROUS SULFATE TAB [Concomitant]
  4. SYNAGIS [Suspect]
     Route: 030
     Dates: start: 20101021, end: 20101021

REACTIONS (1)
  - BRONCHIOLITIS [None]
